FAERS Safety Report 4677312-X (Version None)
Quarter: 2005Q2

REPORT INFORMATION
  Report Type: 
  Country: None (occurrence: None)
  Receive Date: 20050531
  Receipt Date: 20050419
  Transmission Date: 20051028
  Serious: Yes (Other)
  Sender: FDA-Public Use
  Company Number: 200513263US

PATIENT
  Sex: Female
  Weight: 54.5 kg

DRUGS (8)
  1. TAXOTERE [Suspect]
     Indication: BREAST CANCER
     Dosage: DOSE: 100 MG*MM2 (CYCLE 5 THRU 8)
     Route: 042
     Dates: start: 20021001, end: 20021203
  2. HYOSCYAMINE [Concomitant]
  3. REGLAN [Concomitant]
     Indication: INTESTINAL HYPOMOTILITY
     Route: 048
     Dates: start: 20031001
  4. PROTONIX [Concomitant]
     Route: 048
     Dates: start: 20031001
  5. MIRALAX [Concomitant]
     Route: 048
     Dates: start: 20031001
  6. IMODIUM [Concomitant]
     Route: 048
     Dates: start: 20031001
  7. NEURONTIN [Concomitant]
     Indication: NEUROPATHIC PAIN
     Route: 048
  8. FEMARA [Concomitant]
     Indication: HORMONE REPLACEMENT THERAPY
     Route: 048
     Dates: start: 20031001

REACTIONS (5)
  - ABDOMINAL PAIN [None]
  - CONSTIPATION [None]
  - DRUG DEPENDENCE [None]
  - NEUROGENIC BOWEL [None]
  - NEUROPATHY PERIPHERAL [None]
